FAERS Safety Report 10727042 (Version 1)
Quarter: 2015Q1

REPORT INFORMATION
  Report Type: Spontaneous
  Country: US (occurrence: US)
  Receive Date: 20150121
  Receipt Date: 20150121
  Transmission Date: 20150721
  Serious: Yes (Hospitalization, Other)
  Sender: FDA-Public Use
  Company Number: US-ABBVIE-15P-163-1333119-00

PATIENT
  Sex: Male

DRUGS (3)
  1. ANDRODERM [Suspect]
     Active Substance: TESTOSTERONE
     Indication: BLOOD TESTOSTERONE DECREASED
     Route: 061
     Dates: start: 200609, end: 201208
  2. ANDROGEL [Suspect]
     Active Substance: TESTOSTERONE
     Indication: BLOOD TESTOSTERONE DECREASED
     Route: 061
     Dates: start: 20120815, end: 20131129
  3. DEPO-TESTOSTERONE [Suspect]
     Active Substance: TESTOSTERONE CYPIONATE
     Indication: BLOOD TESTOSTERONE DECREASED
     Route: 050
     Dates: start: 20131209, end: 20131209

REACTIONS (12)
  - Cardiac disorder [Unknown]
  - Economic problem [Unknown]
  - Cardiac disorder [Unknown]
  - Injury [Unknown]
  - Prostate cancer [Unknown]
  - Impaired work ability [Unknown]
  - Anxiety [Unknown]
  - Myocardial infarction [Unknown]
  - Cerebrovascular accident [Unknown]
  - Emotional disorder [Unknown]
  - Pain [Unknown]
  - Physical disability [Unknown]

NARRATIVE: CASE EVENT DATE: 201401
